FAERS Safety Report 15938459 (Version 1)
Quarter: 2019Q1

REPORT INFORMATION
  Report Type: Report from Study
  Country: US (occurrence: US)
  Receive Date: 20190208
  Receipt Date: 20190208
  Transmission Date: 20190417
  Serious: Yes (Hospitalization)
  Sender: FDA-Public Use
  Company Number: US-EISAI MEDICAL RESEARCH-EC-2019-051580

PATIENT
  Age: 63 Year
  Sex: Female
  Weight: 129.4 kg

DRUGS (39)
  1. ALBUTEROL. [Concomitant]
     Active Substance: ALBUTEROL
  2. VITAMIN D2 [Concomitant]
     Active Substance: ERGOCALCIFEROL
  3. MELATONIN [Concomitant]
     Active Substance: MELATONIN
  4. MUPIROCIN. [Concomitant]
     Active Substance: MUPIROCIN
  5. PERI-COLACE [Concomitant]
     Active Substance: CASANTHRANOL\DOCUSATE SODIUM
  6. PF-06425090; PLACEBO [Concomitant]
     Active Substance: INVESTIGATIONAL PRODUCT
  7. LAMOTRIGINE. [Concomitant]
     Active Substance: LAMOTRIGINE
  8. MOMETASON [Concomitant]
     Active Substance: MOMETASONE FUROATE
  9. TRAMADOL. [Concomitant]
     Active Substance: TRAMADOL
  10. ATORVASTATIN [Concomitant]
     Active Substance: ATORVASTATIN
  11. BUSPIRONE [Concomitant]
     Active Substance: BUSPIRONE HYDROCHLORIDE
  12. MIRTAZAPINE. [Concomitant]
     Active Substance: MIRTAZAPINE
  13. ONDANSETRON [Concomitant]
     Active Substance: ONDANSETRON
  14. AMILORIDE [Concomitant]
     Active Substance: AMILORIDE
  15. ALBUTEROL SULFATE AND IPRATROPIUM BROMIDE [Concomitant]
     Active Substance: ALBUTEROL SULFATE\IPRATROPIUM BROMIDE
  16. ARTIFICIAL TEAR [Concomitant]
     Active Substance: LANOLIN\MINERAL OIL\PETROLATUM
  17. ESCITALOPRAM [Concomitant]
     Active Substance: ESCITALOPRAM OXALATE
  18. NITROFURANTOIN. [Concomitant]
     Active Substance: NITROFURANTOIN
  19. SUVOREXANT. [Concomitant]
     Active Substance: SUVOREXANT
  20. OXYGEN. [Concomitant]
     Active Substance: OXYGEN
  21. SEROQUEL [Concomitant]
     Active Substance: QUETIAPINE FUMARATE
  22. ARICEPT [Suspect]
     Active Substance: DONEPEZIL HYDROCHLORIDE
     Indication: DEMENTIA ALZHEIMER^S TYPE
     Route: 048
     Dates: start: 20180227, end: 201808
  23. HYDROCHLOROTHIAZIDE. [Concomitant]
     Active Substance: HYDROCHLOROTHIAZIDE
  24. ACETAMINOPHEN. [Concomitant]
     Active Substance: ACETAMINOPHEN
  25. CYCLOSPORINE. [Concomitant]
     Active Substance: CYCLOSPORINE
  26. GLUCAGON. [Concomitant]
     Active Substance: GLUCAGON
  27. SPIRONOLACTONE. [Concomitant]
     Active Substance: SPIRONOLACTONE
  28. ASPIRIN. [Concomitant]
     Active Substance: ASPIRIN
  29. CARBAMAZEPINE. [Concomitant]
     Active Substance: CARBAMAZEPINE
  30. SINUS RINSE [Concomitant]
     Active Substance: SODIUM BICARBONATE\SODIUM CHLORIDE
  31. TOLTERODINE [Concomitant]
     Active Substance: TOLTERODINE
  32. POTASSIUM CHLORIDE. [Concomitant]
     Active Substance: POTASSIUM CHLORIDE
  33. GABAPENTIN. [Concomitant]
     Active Substance: GABAPENTIN
  34. INSULIN LISPRO [Concomitant]
     Active Substance: INSULIN LISPRO
  35. NYSTATIN. [Concomitant]
     Active Substance: NYSTATIN
  36. METOLAZONE. [Concomitant]
     Active Substance: METOLAZONE
  37. INSULIN GLARGINE [Concomitant]
     Active Substance: INSULIN GLARGINE
  38. MIRALAX [Concomitant]
     Active Substance: POLYETHYLENE GLYCOL 3350
  39. TORSEMIDE. [Concomitant]
     Active Substance: TORSEMIDE

REACTIONS (1)
  - Loss of consciousness [Recovered/Resolved]

NARRATIVE: CASE EVENT DATE: 20180808
